FAERS Safety Report 19672828 (Version 1)
Quarter: 2021Q3

REPORT INFORMATION
  Report Type: Spontaneous
  Country: PL (occurrence: PL)
  Receive Date: 20210809
  Receipt Date: 20210809
  Transmission Date: 20211014
  Serious: Yes (Life-Threatening)
  Sender: FDA-Public Use
  Company Number: NVSC2021PL177812

PATIENT
  Age: 45 Year
  Sex: Female
  Weight: 67 kg

DRUGS (1)
  1. CARBOPLATIN. [Suspect]
     Active Substance: CARBOPLATIN
     Indication: PRODUCT USED FOR UNKNOWN INDICATION
     Dosage: 520 MG
     Route: 042
     Dates: start: 20201231, end: 20201231

REACTIONS (3)
  - Dyspnoea [Unknown]
  - Body temperature increased [Unknown]
  - Erythema [Unknown]

NARRATIVE: CASE EVENT DATE: 20201231
